FAERS Safety Report 24072436 (Version 1)
Quarter: 2024Q3

REPORT INFORMATION
  Report Type: Spontaneous
  Country: US (occurrence: None)
  Receive Date: 20240709
  Receipt Date: 20240709
  Transmission Date: 20241016
  Serious: Yes (Life-Threatening, Hospitalization, Disabling, Other)
  Sender: Public
  Company Number: None

PATIENT
  Age: 81 Year
  Sex: Male
  Weight: 72.57 kg

DRUGS (1)
  1. PROLIA [Suspect]
     Active Substance: DENOSUMAB

REACTIONS (11)
  - Myalgia [None]
  - Constipation [None]
  - Balance disorder [None]
  - Tremor [None]
  - Muscle twitching [None]
  - Blood calcium decreased [None]
  - Haemoglobin decreased [None]
  - Peritoneal dialysis [None]
  - Renal impairment [None]
  - Muscle rupture [None]
  - Wrong product administered [None]

NARRATIVE: CASE EVENT DATE: 20230327
